FAERS Safety Report 10538518 (Version 1)
Quarter: 2014Q4

REPORT INFORMATION
  Report Type: Spontaneous
  Country: FR (occurrence: FR)
  Receive Date: 20141023
  Receipt Date: 20141023
  Transmission Date: 20150529
  Serious: Yes (Hospitalization)
  Sender: FDA-Public Use
  Company Number: FR-BRISTOL-MYERS SQUIBB COMPANY-21497995

PATIENT
  Age: 65 Year
  Sex: Male

DRUGS (11)
  1. TILDIEM [Concomitant]
     Active Substance: DILTIAZEM HYDROCHLORIDE
  2. ZOXAN [Concomitant]
     Active Substance: DOXAZOSIN MESYLATE
  3. HYDROCHLOROTHIAZIDE. [Concomitant]
     Active Substance: HYDROCHLOROTHIAZIDE
  4. DOLIPRANE [Concomitant]
     Active Substance: ACETAMINOPHEN
  5. EUCREAS [Concomitant]
     Active Substance: METFORMIN HYDROCHLORIDE\VILDAGLIPTIN
  6. POTASSIUM CHLORIDE. [Concomitant]
     Active Substance: POTASSIUM CHLORIDE
  7. INEXIUM [Concomitant]
     Active Substance: ESOMEPRAZOLE
  8. HYDREA [Suspect]
     Active Substance: HYDROXYUREA
     Indication: POLYCYTHAEMIA VERA
     Route: 048
     Dates: start: 20140428, end: 20140624
  9. LESCOL [Concomitant]
     Active Substance: FLUVASTATIN SODIUM
  10. ACETYLSALICYLIC ACID [Concomitant]
     Active Substance: ASPIRIN
     Indication: POLYCYTHAEMIA VERA
  11. TAVANIC [Concomitant]
     Active Substance: LEVOFLOXACIN

REACTIONS (3)
  - Corynebacterium infection [Unknown]
  - Lung disorder [Unknown]
  - Pyrexia [Recovered/Resolved]

NARRATIVE: CASE EVENT DATE: 20140617
